FAERS Safety Report 8506964 (Version 5)
Quarter: 2018Q4

REPORT INFORMATION
  Report Type: Spontaneous
  Country: US (occurrence: US)
  Receive Date: 20120412
  Receipt Date: 20181109
  Transmission Date: 20190205
  Serious: No
  Sender: FDA-Public Use
  Company Number: US-ASTRAZENECA-2012SE13406

PATIENT
  Age: 87 Year
  Sex: Female

DRUGS (2)
  1. SYMBICORT [Suspect]
     Active Substance: BUDESONIDE\FORMOTEROL FUMARATE DIHYDRATE
     Route: 055
  2. NEXIUM [Suspect]
     Active Substance: ESOMEPRAZOLE MAGNESIUM
     Dosage: DAILY
     Route: 048

REACTIONS (7)
  - Lung disorder [Unknown]
  - Gastric disorder [Unknown]
  - Gastroenteritis viral [Unknown]
  - Product use issue [Unknown]
  - Therapy cessation [Unknown]
  - Arthritis [Unknown]
  - Hypoaesthesia [Unknown]
